FAERS Safety Report 7733563-9 (Version None)
Quarter: 2011Q3

REPORT INFORMATION
  Report Type: 
  Country: None (occurrence: None)
  Receive Date: 20110907
  Receipt Date: 20110824
  Transmission Date: 20111222
  Serious: Yes (Death, Hospitalization, Other)
  Sender: FDA-Public Use
  Company Number: AT-ELI_LILLY_AND_COMPANY-AT201108008599

PATIENT
  Age: 41 Year
  Sex: Female

DRUGS (23)
  1. DIABETEX [Concomitant]
     Dosage: 1000 MG, QD
     Dates: start: 20110309, end: 20110309
  2. HALDOL [Concomitant]
     Dosage: 3 DF, UNK
     Dates: start: 20110309, end: 20110309
  3. NOMEXOR [Concomitant]
     Dosage: 5 MG, QD
     Dates: start: 20110310, end: 20110301
  4. PSYCHOPAX [Concomitant]
     Indication: RESTLESSNESS
     Dosage: UNK, BID
     Dates: start: 20110309, end: 20110301
  5. GEWACALM [Concomitant]
     Dosage: 1 DF, UNK
     Route: 042
     Dates: start: 20110309
  6. ABILIFY [Concomitant]
     Dosage: 35 MG, QD
     Dates: start: 20110310, end: 20110301
  7. NOMEXOR [Concomitant]
     Dosage: 5 MG, QD
     Dates: start: 20110309, end: 20110309
  8. ZYPREXA [Suspect]
     Dosage: 10 MG, QD
     Route: 048
     Dates: start: 20110310, end: 20110301
  9. TRUXAL [Concomitant]
     Dosage: 100 MG, QD
     Dates: start: 20110309, end: 20110317
  10. DIABETEX [Concomitant]
     Dosage: 1000 MG, QD
     Dates: start: 20110310
  11. MENCORD [Concomitant]
     Dosage: 80 MG, QD
     Dates: start: 20110310
  12. AKINETON [Concomitant]
     Indication: EXTRAPYRAMIDAL DISORDER
     Dosage: 2 MG, PRN
     Dates: start: 20110309
  13. ALCOHOL [Concomitant]
  14. ZYPREXA [Suspect]
     Dosage: 25 MG, QD
     Route: 048
     Dates: start: 20110315
  15. NOZINAN [Concomitant]
     Dosage: 2.5 ML, UNK
  16. NOMEXOR [Concomitant]
     Dosage: UNK UNK, QD
     Dates: start: 20110301
  17. PSYCHOPAX [Concomitant]
     Dosage: UNK, OTHER 5 TIMES A DAY
     Dates: start: 20110301
  18. SANDOPARIN [Concomitant]
     Dosage: 1 DF, UNK
     Dates: start: 20110309
  19. NORDAZEPAM [Concomitant]
  20. HALDOL [Concomitant]
     Dosage: 3 DF, UNK
     Dates: start: 20110309
  21. GEWACALM [Concomitant]
     Dosage: 1 DF, UNK
     Route: 042
     Dates: start: 20110309, end: 20110309
  22. ABILIFY [Concomitant]
     Dosage: 25 MG, QD
     Dates: start: 20110309, end: 20110309
  23. MENCORD [Concomitant]
     Dosage: 80 MG, QD
     Dates: start: 20110309, end: 20110309

REACTIONS (8)
  - DILATATION VENTRICULAR [None]
  - HEPATOMEGALY [None]
  - CARDIAC FAILURE [None]
  - PNEUMONIA [None]
  - OVERDOSE [None]
  - DYSPNOEA [None]
  - ELECTROCARDIOGRAM QT PROLONGED [None]
  - ANGINA PECTORIS [None]
